FAERS Safety Report 9261255 (Version 1)
Quarter: 2013Q2

REPORT INFORMATION
  Report Type: Spontaneous
  Country: US (occurrence: US)
  Receive Date: 20130429
  Receipt Date: 20130429
  Transmission Date: 20140414
  Serious: Yes (Hospitalization)
  Sender: FDA-Public Use
  Company Number: US-GLAXOSMITHKLINE-A0790934A

PATIENT
  Age: 52 Year
  Sex: Female
  Weight: 125.9 kg

DRUGS (1)
  1. AVANDIA [Suspect]
     Indication: TYPE 2 DIABETES MELLITUS
     Dosage: 8MG PER DAY
     Route: 048
     Dates: start: 2001, end: 2006

REACTIONS (3)
  - Cardiac failure congestive [Unknown]
  - Congestive cardiomyopathy [Unknown]
  - Coronary artery disease [Unknown]
